FAERS Safety Report 20092402 (Version 3)
Quarter: 2021Q4

REPORT INFORMATION
  Report Type: Spontaneous
  Country: US (occurrence: US)
  Receive Date: 20211119
  Receipt Date: 20211211
  Transmission Date: 20220304
  Serious: No
  Sender: FDA-Public Use
  Company Number: US-GSKCCFUS-Case-01220517_AE-71513

PATIENT
  Sex: Female

DRUGS (1)
  1. BENLYSTA [Suspect]
     Active Substance: BELIMUMAB
     Indication: Product used for unknown indication
     Dosage: UNK, 200MG/ML X4
     Route: 058

REACTIONS (3)
  - Wrong technique in device usage process [Unknown]
  - Underdose [Not Recovered/Not Resolved]
  - Product complaint [Unknown]
